FAERS Safety Report 5888123-1 (Version None)
Quarter: 2008Q3

REPORT INFORMATION
  Report Type: 
  Country: None (occurrence: None)
  Receive Date: 20080918
  Receipt Date: 20080911
  Transmission Date: 20090109
  Serious: Yes (Hospitalization, Disabling)
  Sender: FDA-Public Use
  Company Number: FR-ABBOTT-08P-056-0476041-00

PATIENT
  Sex: Female

DRUGS (6)
  1. VERCYTE [Suspect]
     Indication: POLYCYTHAEMIA VERA
     Route: 048
  2. CLORAZEPATE DIPOTASSIUM [Suspect]
     Indication: INSOMNIA
     Route: 048
  3. ENALAPRIL MALEATE [Suspect]
     Indication: DRUG USE FOR UNKNOWN INDICATION
     Route: 048
  4. LERCANIDIPINE [Suspect]
     Indication: HYPERTENSION
     Route: 048
  5. LANSOPRAZOLE [Suspect]
     Indication: DRUG USE FOR UNKNOWN INDICATION
  6. PAROXETINE HCL [Suspect]
     Indication: DEPRESSION
     Route: 048

REACTIONS (6)
  - AMYOTROPHIC LATERAL SCLEROSIS [None]
  - GAIT DISTURBANCE [None]
  - MOTOR DYSFUNCTION [None]
  - PAIN IN EXTREMITY [None]
  - PYRAMIDAL TRACT SYNDROME [None]
  - SENSATION OF HEAVINESS [None]
